FAERS Safety Report 12262799 (Version 1)
Quarter: 2016Q2

REPORT INFORMATION
  Report Type: Spontaneous
  Country: PK (occurrence: PK)
  Receive Date: 20160413
  Receipt Date: 20160413
  Transmission Date: 20160815
  Serious: Yes (Death, Other)
  Sender: FDA-Public Use
  Company Number: PK-PAR PHARMACEUTICAL COMPANIES-2016SCPR015328

PATIENT

DRUGS (1)
  1. PITOCIN [Suspect]
     Active Substance: OXYTOCIN
     Indication: LABOUR INDUCTION
     Dosage: UNK UNK, UNKNOWN
     Route: 064

REACTIONS (3)
  - Foetal exposure during delivery [Unknown]
  - Neonatal asphyxia [Unknown]
  - Stillbirth [Fatal]
